FAERS Safety Report 12614101 (Version 2)
Quarter: 2024Q2

REPORT INFORMATION
  Report Type: Spontaneous
  Country: PL (occurrence: PL)
  Receive Date: 20160802
  Receipt Date: 20240415
  Transmission Date: 20240716
  Serious: Yes (Hospitalization, Other)
  Sender: FDA-Public Use
  Company Number: PL-MLMSERVICE-20160720-0364533-1

PATIENT
  Age: 22 Year
  Sex: Female

DRUGS (8)
  1. TACROLIMUS [Suspect]
     Active Substance: TACROLIMUS
     Indication: Liver transplant
     Dosage: UNK UNK, UNKNOWN FREQ.
     Route: 065
  2. TACROLIMUS [Suspect]
     Active Substance: TACROLIMUS
     Dosage: UNK UNK, UNKNOWN FREQ. (INCREASE IN TACROLIMUS DEMAND)
     Route: 065
  3. TACROLIMUS [Suspect]
     Active Substance: TACROLIMUS
     Dosage: 0.5 MG, OTHER  (EVERY 72H)
     Route: 065
  4. TACROLIMUS [Suspect]
     Active Substance: TACROLIMUS
     Dosage: 0.5 MG, ONCE DAILY
     Route: 065
  5. TACROLIMUS [Suspect]
     Active Substance: TACROLIMUS
     Route: 065
  6. TACROLIMUS [Suspect]
     Active Substance: TACROLIMUS
     Dosage: 0.5 MG, ONCE WEEKLY
     Route: 065
  7. MYCOPHENOLATE MOFETIL [Concomitant]
     Active Substance: MYCOPHENOLATE MOFETIL
     Indication: Liver transplant
     Dosage: UNK, UNKNOWN FREQ.
     Route: 065
  8. PREDNISONE [Concomitant]
     Active Substance: PREDNISONE
     Indication: Liver transplant
     Dosage: UNK, UNKNOWN FREQ.
     Route: 065

REACTIONS (9)
  - Hepatitis cholestatic [Recovered/Resolved]
  - Upper respiratory tract infection [Unknown]
  - Clostridium difficile infection [Unknown]
  - Hepatitis C [Recovered/Resolved]
  - Oral candidiasis [Unknown]
  - Genital candidiasis [Unknown]
  - Urinary tract infection [Unknown]
  - Renal impairment [Unknown]
  - Toxicity to various agents [Unknown]
